FAERS Safety Report 4731900-0 (Version None)
Quarter: 2005Q3

REPORT INFORMATION
  Report Type: 
  Country: None (occurrence: None)
  Receive Date: 20050802
  Receipt Date: 20050721
  Transmission Date: 20060218
  Serious: Yes (Hospitalization)
  Sender: FDA-Public Use
  Company Number: US-JNJFOC-20050602038

PATIENT
  Sex: Female
  Weight: 72.58 kg

DRUGS (1)
  1. FENTANYL [Suspect]
     Route: 062
     Dates: start: 20050101

REACTIONS (4)
  - BACK PAIN [None]
  - DYSPNOEA [None]
  - OXYGEN SATURATION DECREASED [None]
  - THROMBOSIS [None]
